FAERS Safety Report 5705743-5 (Version None)
Quarter: 2008Q2

REPORT INFORMATION
  Report Type: 
  Country: None (occurrence: None)
  Receive Date: 20080415
  Receipt Date: 20080404
  Transmission Date: 20081010
  Serious: Yes (Other)
  Sender: FDA-Public Use
  Company Number: B0516333A

PATIENT
  Age: 57 Year
  Sex: Male

DRUGS (3)
  1. SERETIDE [Suspect]
     Indication: DRUG USE FOR UNKNOWN INDICATION
     Dosage: 2PUFF TWICE PER DAY
     Route: 055
  2. SUTENT [Suspect]
     Indication: DRUG USE FOR UNKNOWN INDICATION
     Route: 048
     Dates: start: 20070919, end: 20080120
  3. CLASTOBAN [Suspect]
     Indication: DRUG USE FOR UNKNOWN INDICATION
     Dosage: 1600MG PER DAY
     Route: 048

REACTIONS (8)
  - ANOREXIA [None]
  - APHONIA [None]
  - ASTHENIA [None]
  - COUGH [None]
  - DYSPHONIA [None]
  - LUNG ABSCESS [None]
  - PSEUDOMONAS INFECTION [None]
  - SKIN DISORDER [None]
